FAERS Safety Report 24361674 (Version 1)
Quarter: 2024Q3

REPORT INFORMATION
  Report Type: Spontaneous
  Country: PT (occurrence: PT)
  Receive Date: 20240925
  Receipt Date: 20240925
  Transmission Date: 20241016
  Serious: Yes (Other)
  Sender: AUROBINDO
  Company Number: PT-AUROBINDO-AUR-APL-2024-045762

PATIENT
  Age: 44 Year
  Sex: Male

DRUGS (12)
  1. LEFLUNOMIDE [Suspect]
     Active Substance: LEFLUNOMIDE
     Indication: Immunosuppression
     Dosage: 20 MILLIGRAM, ONCE A DAY
     Route: 065
  2. LEFLUNOMIDE [Suspect]
     Active Substance: LEFLUNOMIDE
     Indication: Sarcoidosis
     Dosage: 15 MILLIGRAM, ONCE A DAY
     Route: 065
  3. METHOTREXATE [Suspect]
     Active Substance: METHOTREXATE
     Indication: Immunosuppression
     Dosage: 15 MILLIGRAM, WEEK
     Route: 065
  4. METHOTREXATE [Suspect]
     Active Substance: METHOTREXATE
     Indication: Sarcoidosis
  5. AZATHIOPRINE [Suspect]
     Active Substance: AZATHIOPRINE
     Indication: Immunosuppression
     Dosage: 2.5 MILLIGRAM/KILOGRAM, ONCE A DAY
     Route: 065
  6. AZATHIOPRINE [Suspect]
     Active Substance: AZATHIOPRINE
     Indication: Sarcoidosis
  7. INFLIXIMAB [Suspect]
     Active Substance: INFLIXIMAB
     Indication: Tumour necrosis
     Dosage: 5 MILLIGRAM/KILOGRAM/MONTH
     Route: 065
  8. INFLIXIMAB [Suspect]
     Active Substance: INFLIXIMAB
     Indication: Sarcoidosis
  9. PREDNISOLONE [Suspect]
     Active Substance: PREDNISOLONE
     Indication: Tumour necrosis
     Dosage: 7.5 MILLIGRAM, ONCE A DAY
     Route: 065
  10. PREDNISOLONE [Suspect]
     Active Substance: PREDNISOLONE
     Indication: Sarcoidosis
  11. HYDROXYCHLOROQUINE [Suspect]
     Active Substance: HYDROXYCHLOROQUINE
     Indication: Tumour necrosis
     Dosage: 400 MILLIGRAM, ONCE A DAY
     Route: 065
  12. HYDROXYCHLOROQUINE [Suspect]
     Active Substance: HYDROXYCHLOROQUINE
     Indication: Sarcoidosis

REACTIONS (1)
  - Drug ineffective [Unknown]
